FAERS Safety Report 25625989 (Version 2)
Quarter: 2025Q4

REPORT INFORMATION
  Report Type: Report from Study
  Country: US (occurrence: US)
  Receive Date: 20250731
  Receipt Date: 20251114
  Transmission Date: 20260117
  Serious: Yes (Hospitalization, Other)
  Sender: ALEXION PHARMACEUTICALS
  Company Number: US-ASTRAZENECA-202507USA025206US

PATIENT
  Age: 60 Year
  Sex: Female

DRUGS (3)
  1. ROSUVASTATIN [Suspect]
     Active Substance: ROSUVASTATIN
  2. LORBRENA [Suspect]
     Active Substance: LORLATINIB
     Dosage: 100 MILLIGRAM, QD
     Dates: start: 20250121
  3. LORBRENA [Suspect]
     Active Substance: LORLATINIB
     Dosage: 75 MILLIGRAM

REACTIONS (14)
  - Nephrolithiasis [Not Recovered/Not Resolved]
  - Weight decreased [Recovering/Resolving]
  - Libido increased [Unknown]
  - Crying [Unknown]
  - Dizziness [Unknown]
  - Affective disorder [Not Recovered/Not Resolved]
  - Lipids increased [Recovering/Resolving]
  - Peripheral swelling [Recovering/Resolving]
  - Headache [Unknown]
  - Feeling abnormal [Unknown]
  - Urinary tract infection [Not Recovered/Not Resolved]
  - COVID-19 [Not Recovered/Not Resolved]
  - Nasal congestion [Unknown]
  - Aphonia [Unknown]
